FAERS Safety Report 16017264 (Version 1)
Quarter: 2019Q1

REPORT INFORMATION
  Report Type: Spontaneous
  Country: US (occurrence: US)
  Receive Date: 20190131
  Receipt Date: 20190131
  Transmission Date: 20190418
  Serious: No
  Sender: FDA-Public Use
  Company Number: None

PATIENT
  Age: 62 Year
  Sex: Female

DRUGS (1)
  1. SPRYCEL [Suspect]
     Active Substance: DASATINIB
     Dates: start: 20180425

REACTIONS (4)
  - Back pain [None]
  - Oral pain [None]
  - Constipation [None]
  - Myalgia [None]

NARRATIVE: CASE EVENT DATE: 20190131
